FAERS Safety Report 19911731 (Version 7)
Quarter: 2021Q4

REPORT INFORMATION
  Report Type: Report from Study
  Country: KR (occurrence: KR)
  Receive Date: 20211004
  Receipt Date: 20211223
  Transmission Date: 20220303
  Serious: Yes (Death, Hospitalization)
  Sender: FDA-Public Use
  Company Number: KR-GLAXOSMITHKLINE-KR2021200889

PATIENT
  Age: 80 Year
  Sex: Male
  Weight: 66.6 kg

DRUGS (45)
  1. DOSTARLIMAB [Suspect]
     Active Substance: DOSTARLIMAB
     Indication: Non-small cell lung cancer
     Dosage: DOSE AT CYCLE 1 - DAY 1
     Dates: start: 20210521, end: 20210521
  2. DOSTARLIMAB [Suspect]
     Active Substance: DOSTARLIMAB
     Dosage: DOSE AT DAY 1
     Dates: start: 20210609, end: 20210609
  3. DOSTARLIMAB [Suspect]
     Active Substance: DOSTARLIMAB
     Dosage: DOSE AT DAY 1
     Dates: start: 20210630, end: 20210630
  4. DOSTARLIMAB [Suspect]
     Active Substance: DOSTARLIMAB
     Dosage: DOSE AT DAY 1
     Dates: start: 20210721, end: 20210721
  5. DOSTARLIMAB [Suspect]
     Active Substance: DOSTARLIMAB
     Dosage: DOSE AT DAY 1
     Dates: start: 20210811, end: 20210811
  6. DOSTARLIMAB [Suspect]
     Active Substance: DOSTARLIMAB
     Dosage: DOSE AT DAY 1
     Dates: start: 20210901, end: 20210901
  7. PEMETREXED [Suspect]
     Active Substance: PEMETREXED
     Indication: Non-small cell lung cancer
     Dosage: DOSE AT CYCLE 1 - DAY 1
     Route: 042
     Dates: start: 20210521, end: 20210521
  8. PEMETREXED [Suspect]
     Active Substance: PEMETREXED
     Dosage: DOSE AT DAY 1
     Route: 042
     Dates: start: 20210609, end: 20210609
  9. PEMETREXED [Suspect]
     Active Substance: PEMETREXED
     Dosage: DOSE AT DAY 1
     Route: 042
     Dates: start: 20210630, end: 20210630
  10. PEMETREXED [Suspect]
     Active Substance: PEMETREXED
     Dosage: DOSE AT DAY 1
     Route: 042
     Dates: start: 20210721, end: 20210721
  11. PEMETREXED [Suspect]
     Active Substance: PEMETREXED
     Dosage: DOSE AT DAY 1
     Route: 042
     Dates: start: 20210811, end: 20210811
  12. PEMETREXED [Suspect]
     Active Substance: PEMETREXED
     Dosage: DOSE AT DAY 1
     Route: 042
     Dates: start: 20210901, end: 20210901
  13. CARBOPLATIN [Suspect]
     Active Substance: CARBOPLATIN
     Indication: Non-small cell lung cancer
     Dosage: DOSE AT CYCLE 1 - DAY 1
     Route: 042
     Dates: start: 20210521, end: 20210521
  14. CARBOPLATIN [Suspect]
     Active Substance: CARBOPLATIN
     Dosage: DOSE AT DAY 1
     Route: 042
     Dates: start: 20210609, end: 20210609
  15. CARBOPLATIN [Suspect]
     Active Substance: CARBOPLATIN
     Dosage: DOSE AT DAY 1
     Route: 042
     Dates: start: 20210630, end: 20210630
  16. CARBOPLATIN [Suspect]
     Active Substance: CARBOPLATIN
     Dosage: DOSE AT DAY 1
     Route: 042
     Dates: start: 20210721, end: 20210721
  17. CANDEMORE [Concomitant]
     Indication: Hypertension
     Dosage: 16 MG (FREQUENCY = ONCE DAILY)
     Route: 048
     Dates: start: 2011
  18. CODEINE [Concomitant]
     Active Substance: CODEINE
     Indication: Cough
     Dosage: 20 MG, TID
     Route: 048
     Dates: start: 20210422
  19. CODEINE [Concomitant]
     Active Substance: CODEINE
     Dosage: 20 MG, Z-FOUR TIMES A DAY
     Route: 048
     Dates: start: 20210630
  20. TRANSAMIN [Concomitant]
     Active Substance: TRANEXAMIC ACID
     Indication: Haemoptysis
     Dosage: 250 MG, TID
     Route: 048
     Dates: start: 20210421
  21. ERDOSTEINE [Concomitant]
     Active Substance: ERDOSTEINE
     Indication: Productive cough
     Dosage: 300 MG, TID
     Route: 048
     Dates: start: 20210422
  22. OXYGEN [Concomitant]
     Active Substance: OXYGEN
     Indication: Dyspnoea
     Dosage: 1-5LITER , PRN
     Route: 050
     Dates: start: 20210430
  23. DOXOFYLLINE [Concomitant]
     Active Substance: DOXOFYLLINE
     Indication: Dyspnoea
     Dosage: 400 MG, TID
     Route: 048
     Dates: start: 20210511
  24. MOKTIN [Concomitant]
     Indication: Productive cough
     Dosage: 200 MG, BID
     Route: 048
     Dates: start: 20210517
  25. MUCOSTEN INJECTION [Concomitant]
     Indication: Productive cough
     Dosage: 600 MG, BID
     Route: 048
     Dates: start: 20210518
  26. ALOXI INJECTION [Concomitant]
     Indication: Premedication
     Dosage: 0.25 MG (FREQUENCY = OTHER: EVERY 3WEEKS)
     Route: 042
     Dates: start: 20210521
  27. ACTINAMIDE INJECTION [Concomitant]
     Indication: Premedication
     Dosage: 1 MG (FREQUENCY = OTHER: EVERY 9WEEKS)
     Route: 030
     Dates: start: 20210521
  28. FOLCID [Concomitant]
     Indication: Premedication
     Dosage: 1 MG (FREQUENCY = ONCE DAILY)
     Route: 048
     Dates: start: 20210521
  29. DEXAMETHASONE [Concomitant]
     Active Substance: DEXAMETHASONE
     Indication: Premedication
     Dosage: 4 MG, BID
     Route: 048
     Dates: start: 20210521
  30. METOCLOPRAMIDE HYDROCHLORIDE [Concomitant]
     Active Substance: METOCLOPRAMIDE HYDROCHLORIDE
     Indication: Prophylaxis of nausea and vomiting
     Dosage: 10 MG (FREQUENCY = AS NEEDED)
     Route: 048
     Dates: start: 20210521
  31. MAGNESIUM OXIDE [Concomitant]
     Active Substance: MAGNESIUM OXIDE
     Indication: Constipation prophylaxis
     Dosage: 500 MG (FREQUENCY = AS NEEDED)
     Route: 048
     Dates: start: 20210521
  32. MAGNESIUM OXIDE [Concomitant]
     Active Substance: MAGNESIUM OXIDE
     Dosage: 250 MG, TID
     Route: 048
     Dates: start: 20210527
  33. LOPERAMIDE [Concomitant]
     Active Substance: LOPERAMIDE
     Indication: Prophylaxis against diarrhoea
     Dosage: 2 MG (FREQUENCY = AS NEEDED)
     Route: 048
     Dates: start: 20210521
  34. TANTUM GARGLE [Concomitant]
     Indication: Mucosal inflammation
     Dosage: 100 ML (FREQUENCY = AS NEEDED)
     Route: 050
     Dates: start: 20210521
  35. ALAXYL GRANULE [Concomitant]
     Indication: Constipation prophylaxis
     Dosage: 8 G (FREQUENCY = ONCE DAILY)
     Route: 048
     Dates: start: 20210527
  36. MEGACE F SUSPENSION [Concomitant]
     Indication: Decreased appetite
     Dosage: 5 ML, QD
     Route: 048
     Dates: start: 20210609
  37. MYPOL [Concomitant]
     Indication: Chest discomfort
     Dosage: 1 DF, TID1 CAPSULE (FREQUENCY = THREE TIMES DAILY)
     Route: 048
     Dates: start: 20210609
  38. DUPHALAC EASY SYRUP [Concomitant]
     Indication: Constipation prophylaxis
     Dosage: 15 ML, TID
     Route: 048
     Dates: start: 20210609
  39. MUCOSOL (BROMHEXINE HYDROCHLORIDE) [Concomitant]
     Indication: Productive cough
     Dosage: 8 MG, TID
     Route: 048
     Dates: start: 20210811
  40. SULFAMETHOXAZOLE\TRIMETHOPRIM [Concomitant]
     Active Substance: SULFAMETHOXAZOLE\TRIMETHOPRIM
     Indication: Infection prophylaxis
     Dosage: 2 TABLET (FREQUENCY = ONCE DAILY)
     Route: 048
     Dates: start: 20210915
  41. FEROBA-YOU SR [Concomitant]
     Indication: Anaemia prophylaxis
     Dosage: 256 MG (FREQUENCY = ONCE DAILY)
     Route: 048
     Dates: start: 20210811
  42. TYLENOL-ER [Concomitant]
     Indication: Headache
     Dosage: 650 MG, BID
     Route: 048
     Dates: start: 20210901
  43. BANAN [Concomitant]
     Active Substance: CEFPODOXIME PROXETIL
     Indication: Infection prophylaxis
     Dosage: 100 MG, BID
     Route: 048
     Dates: start: 20210915
  44. PREDNISOLONE [Concomitant]
     Active Substance: PREDNISOLONE
     Dosage: UNK
     Dates: start: 20210915, end: 20210918
  45. LEVOFLOXACIN [Concomitant]
     Active Substance: LEVOFLOXACIN
     Indication: Infection prophylaxis
     Dosage: 500 MG (FREQUENCY = ONCE DAILY)
     Route: 048
     Dates: start: 20210915

REACTIONS (1)
  - Immune-mediated lung disease [Fatal]

NARRATIVE: CASE EVENT DATE: 20210919
